FAERS Safety Report 5240408-8 (Version None)
Quarter: 2007Q1

REPORT INFORMATION
  Report Type: 
  Country: None (occurrence: None)
  Receive Date: 20070219
  Receipt Date: 20070206
  Transmission Date: 20070707
  Serious: Yes (Hospitalization)
  Sender: FDA-Public Use
  Company Number: PHBS2007ES02229

PATIENT
  Age: 75 Year
  Sex: Female

DRUGS (5)
  1. VOLTAREN [Suspect]
     Route: 049
  2. KETESSE [Suspect]
     Indication: CELLULITIS
     Dosage: 75 MG/DAY
     Route: 048
     Dates: start: 20060415, end: 20060424
  3. ASPIRIN [Suspect]
     Dosage: 100 MG/DAY
     Route: 048
  4. PLAVIX [Suspect]
  5. ENEAS [Suspect]
     Indication: ESSENTIAL HYPERTENSION
     Dates: end: 20060424

REACTIONS (7)
  - BLOOD CREATININE INCREASED [None]
  - BLOOD FIBRINOGEN INCREASED [None]
  - BLOOD UREA INCREASED [None]
  - DRUG INTERACTION [None]
  - MICROLITHIASIS [None]
  - RENAL FAILURE ACUTE [None]
  - WHITE BLOOD CELL COUNT INCREASED [None]
